FAERS Safety Report 17306108 (Version 1)
Quarter: 2020Q1

REPORT INFORMATION
  Report Type: Spontaneous
  Country: GB (occurrence: GB)
  Receive Date: 20200123
  Receipt Date: 20200123
  Transmission Date: 20200409
  Serious: Yes (Life-Threatening)
  Sender: FDA-Public Use
  Company Number: GB-TEVA-2020-GB-1171678

PATIENT
  Age: 20 Year
  Sex: Female
  Weight: 55 kg

DRUGS (6)
  1. TRAMADOL. [Concomitant]
     Active Substance: TRAMADOL
     Dosage: NO MORE THAN 200MG PER DAY AS PER CONSULTANT LE...
     Dates: start: 20190916
  2. RIGEVIDON [Concomitant]
     Dosage: AS DIRECTED. 1 DOSAGE FORMS
     Dates: start: 20190819
  3. MIDODRINE HYDROCHLORIDE. [Concomitant]
     Active Substance: MIDODRINE HYDROCHLORIDE
     Dosage: AS INSTRUCTED BY CARDIOLOGY L... 3 DOSAGE FORMS
     Dates: start: 20190930, end: 20191030
  4. PREGABALIN. [Concomitant]
     Active Substance: PREGABALIN
     Dosage: 2 DOSAGE FORMS
     Dates: start: 20191218
  5. PREGABALIN. [Suspect]
     Active Substance: PREGABALIN
     Dosage: 25 MG
     Route: 065
     Dates: start: 20191225
  6. RANITIDINE. [Concomitant]
     Active Substance: RANITIDINE
     Dosage: 2 DOSAGE FORMS
     Dates: start: 20190821

REACTIONS (1)
  - Anaphylactic reaction [Recovered/Resolved]

NARRATIVE: CASE EVENT DATE: 20191225
